FAERS Safety Report 8009973-1 (Version None)
Quarter: 2011Q4

REPORT INFORMATION
  Report Type: 
  Country: None (occurrence: None)
  Receive Date: 20111123
  Receipt Date: 20110830
  Transmission Date: 20120403
  Serious: No
  Sender: FDA-Public Use
  Company Number: 334746

PATIENT
  Age: 65 Year
  Sex: Male

DRUGS (2)
  1. VICTOZA [Suspect]
     Indication: TYPE 2 DIABETES MELLITUS
     Dosage: 0.6 MG, QD, SUBCUTANEOUS 1.2 MG, QD, SUBCUTANEOUS 1.8 MG, QD, SUBCUTANEOUS
     Route: 058
     Dates: start: 20110830
  2. VICTOZA [Suspect]
     Indication: TYPE 2 DIABETES MELLITUS
     Dosage: 0.6 MG, QD, SUBCUTANEOUS 1.2 MG, QD, SUBCUTANEOUS 1.8 MG, QD, SUBCUTANEOUS
     Route: 058
     Dates: start: 20110825, end: 20110829

REACTIONS (5)
  - MOOD ALTERED [None]
  - MALAISE [None]
  - ASTHENIA [None]
  - INJECTION SITE HAEMATOMA [None]
  - DIARRHOEA [None]
